FAERS Safety Report 6060221-1 (Version None)
Quarter: 2009Q1

REPORT INFORMATION
  Report Type: 
  Country: None (occurrence: None)
  Receive Date: 20090129
  Receipt Date: 20090116
  Transmission Date: 20090719
  Serious: Yes (Hospitalization)
  Sender: FDA-Public Use
  Company Number: 2009-GWUS-0028

PATIENT
  Age: 20 Year
  Sex: Female

DRUGS (5)
  1. FLECAINIDE ACETATE [Suspect]
     Indication: ARRHYTHMIA
     Dosage: 100 MG BID PO
     Route: 048
  2. FLECAINIDE ACETATE [Suspect]
     Indication: ELECTROCARDIOGRAM QT PROLONGED
     Dosage: 100 MG BID PO
     Route: 048
  3. BISOPROLOL FUMARATE [Suspect]
     Dosage: 2.5 MG QD PO
     Route: 048
  4. FLECAINIDE ACETATE [Suspect]
     Indication: ARRHYTHMIA
     Dosage: 200 MG BID PO
     Route: 048
  5. FLECAINIDE ACETATE [Suspect]
     Indication: ELECTROCARDIOGRAM QT PROLONGED
     Dosage: 200 MG BID PO
     Route: 048

REACTIONS (7)
  - ATRIAL TACHYCARDIA [None]
  - BRUGADA SYNDROME [None]
  - BUNDLE BRANCH BLOCK RIGHT [None]
  - DIZZINESS [None]
  - PALPITATIONS [None]
  - SYNCOPE [None]
  - VENTRICULAR TACHYCARDIA [None]
